FAERS Safety Report 20596903 (Version 1)
Quarter: 2022Q1

REPORT INFORMATION
  Report Type: Spontaneous
  Country: US (occurrence: US)
  Receive Date: 20220315
  Receipt Date: 20220315
  Transmission Date: 20220423
  Serious: No
  Sender: FDA-Public Use
  Company Number: US-PERRIGO-21US006778

PATIENT
  Age: 49 Year
  Sex: Male
  Weight: 126.98 kg

DRUGS (7)
  1. NICOTINE POLACRILEX [Suspect]
     Active Substance: NICOTINE
     Indication: Smoking cessation therapy
     Dosage: 4 MG, 18 TO 20 TIMES DAILY
     Route: 002
     Dates: start: 202003
  2. PAXIL                              /00830802/ [Concomitant]
     Indication: Bipolar disorder
     Dosage: UNKNOWN, UNKNOWN
     Route: 065
  3. LITHIUM [Concomitant]
     Active Substance: LITHIUM
     Indication: Bipolar disorder
     Dosage: UNKNOWN, UNKNOWN
     Route: 065
  4. KLONOPIN [Concomitant]
     Active Substance: CLONAZEPAM
     Indication: Bipolar disorder
     Dosage: UNKNOWN, UNKNOWN
     Route: 065
  5. CHLORMEZANONE [Concomitant]
     Active Substance: CHLORMEZANONE
     Indication: Bipolar disorder
     Dosage: UNKNOWN, UNKNOWN
     Route: 065
  6. EFFEXOR [Concomitant]
     Active Substance: VENLAFAXINE HYDROCHLORIDE
     Indication: Bipolar disorder
     Dosage: UNKNOWN, UNKNOWN
     Route: 065
  7. HALDOL                             /00027401/ [Concomitant]
     Indication: Bipolar disorder
     Dosage: UNKNOWN, UNKNOWN
     Route: 065

REACTIONS (1)
  - Nicotine dependence [Not Recovered/Not Resolved]

NARRATIVE: CASE EVENT DATE: 20201101
